FAERS Safety Report 10534288 (Version 1)
Quarter: 2014Q4

REPORT INFORMATION
  Report Type: Spontaneous
  Country: US (occurrence: US)
  Receive Date: 20141022
  Receipt Date: 20141022
  Transmission Date: 20150529
  Serious: Yes (Death, Hospitalization, Other)
  Sender: FDA-Public Use
  Company Number: US-B.I. PHARMACEUTICALS,INC./RIDGEFIELD-2014-BI-49879BP

PATIENT
  Age: 62 Year
  Sex: Male

DRUGS (12)
  1. PRADAXA [Suspect]
     Active Substance: DABIGATRAN ETEXILATE MESYLATE
     Indication: ATRIAL FIBRILLATION
     Dosage: 300 MG
     Route: 048
     Dates: start: 201103
  2. VELCADE [Suspect]
     Active Substance: BORTEZOMIB
     Dosage: 0.1643 MG
     Route: 058
     Dates: start: 20110523
  3. CYTOXAN [Suspect]
     Active Substance: CYCLOPHOSPHAMIDE
     Indication: PLASMA CELL MYELOMA
     Dosage: 71.4286 MG
     Route: 048
     Dates: start: 201103, end: 20110519
  4. PROCHLORPERAZINE MALEATE. [Concomitant]
     Active Substance: PROCHLORPERAZINE MALEATE
     Indication: PRODUCT USED FOR UNKNOWN INDICATION
     Dosage: 30 MG
     Route: 048
  5. DEXAMETHASONE. [Suspect]
     Active Substance: DEXAMETHASONE
     Dosage: 1.4286 MG
     Route: 065
     Dates: start: 20110523
  6. OXYCONTIN [Concomitant]
     Active Substance: OXYCODONE HYDROCHLORIDE
     Indication: PRODUCT USED FOR UNKNOWN INDICATION
     Dosage: 20 MG
     Route: 048
  7. CYTOXAN [Suspect]
     Active Substance: CYCLOPHOSPHAMIDE
     Dosage: 28.5714 MG
     Route: 065
     Dates: start: 20110523
  8. ANZEMET [Concomitant]
     Active Substance: DOLASETRON MESYLATE
     Indication: PRODUCT USED FOR UNKNOWN INDICATION
     Dosage: 100 MG
     Route: 065
  9. VELCADE [Suspect]
     Active Substance: BORTEZOMIB
     Indication: PLASMA CELL MYELOMA
     Dosage: DOSAGE: 1.3MG/M2
     Route: 065
     Dates: start: 201103, end: 20110519
  10. DEXAMETHASONE. [Suspect]
     Active Substance: DEXAMETHASONE
     Indication: PLASMA CELL MYELOMA
     Dosage: 5.7143 MG
     Route: 048
     Dates: start: 201103, end: 20110519
  11. DIGOXIN. [Concomitant]
     Active Substance: DIGOXIN
     Indication: PRODUCT USED FOR UNKNOWN INDICATION
     Dosage: 250 MCG
     Route: 048
  12. BACTRIM DS [Concomitant]
     Active Substance: SULFAMETHOXAZOLE\TRIMETHOPRIM
     Indication: PRODUCT USED FOR UNKNOWN INDICATION
     Dosage: DOSE PER APPLICATION AND DAILY DOSE: 800 MG-106 MG
     Route: 048

REACTIONS (18)
  - Sepsis [Unknown]
  - Multi-organ failure [Unknown]
  - Dizziness [Unknown]
  - Hiccups [Unknown]
  - Gallbladder disorder [Unknown]
  - Subarachnoid haemorrhage [Fatal]
  - Pancytopenia [Unknown]
  - Hepatic enzyme abnormal [Unknown]
  - Subdural haematoma [Fatal]
  - Respiratory failure [Unknown]
  - Metabolic acidosis [Unknown]
  - Constipation [Unknown]
  - Epistaxis [Unknown]
  - Ascites [Unknown]
  - Cerebral haemorrhage [Fatal]
  - Fatigue [Unknown]
  - Hepatomegaly [Unknown]
  - Renal cyst [Unknown]

NARRATIVE: CASE EVENT DATE: 2011
